FAERS Safety Report 9140398 (Version 2)
Quarter: 2013Q2

REPORT INFORMATION
  Report Type: Spontaneous
  Country: US (occurrence: US)
  Receive Date: 20130305
  Receipt Date: 20130503
  Transmission Date: 20140414
  Serious: Yes (Life-Threatening, Hospitalization, Other)
  Sender: FDA-Public Use
  Company Number: US-ELI_LILLY_AND_COMPANY-US201302009593

PATIENT
  Sex: Female
  Weight: 159 kg

DRUGS (4)
  1. ALIMTA [Suspect]
     Indication: LUNG NEOPLASM MALIGNANT
     Dosage: 915 MG, MONTHLY (1/M)
     Route: 042
  2. AVASTIN [Concomitant]
     Indication: LUNG NEOPLASM MALIGNANT
  3. VITAMIN B12 [Concomitant]
     Dosage: 1000 UG, UNK
     Route: 030
  4. FOLIC ACID [Concomitant]
     Dosage: 400 UG, UNK
     Route: 048

REACTIONS (3)
  - Cardiac arrest [Recovered/Resolved]
  - Myocardial infarction [Recovered/Resolved]
  - Off label use [Unknown]
